FAERS Safety Report 5636396-2 (Version None)
Quarter: 2008Q1

REPORT INFORMATION
  Report Type: 
  Country: None (occurrence: None)
  Receive Date: 20080225
  Receipt Date: 20080201
  Transmission Date: 20080703
  Serious: No
  Sender: FDA-Public Use
  Company Number: A0697532A

PATIENT
  Age: 69 Year
  Sex: Female

DRUGS (2)
  1. VERAMYST [Suspect]
     Route: 045
     Dates: start: 20070924, end: 20070930
  2. UNKNOWN MEDICATION [Concomitant]

REACTIONS (4)
  - COUGH [None]
  - NASAL DISCOMFORT [None]
  - RETCHING [None]
  - VOMITING [None]
